FAERS Safety Report 5826325-0 (Version None)
Quarter: 2008Q3

REPORT INFORMATION
  Report Type: 
  Country: None (occurrence: None)
  Receive Date: 20080723
  Receipt Date: 20080708
  Transmission Date: 20090109
  Serious: Yes (Other)
  Sender: FDA-Public Use
  Company Number: DE-1166769

PATIENT
  Sex: Female

DRUGS (1)
  1. BETOPTIC (BETAXOLOL HYDROCHLORIDE) 0.5% SOLUTION EYE DROPS, SOLUTION [Suspect]
     Indication: OPEN ANGLE GLAUCOMA
     Dosage: TID OPHTHALMIC
     Route: 047

REACTIONS (3)
  - AMNIOTIC CAVITY DISORDER [None]
  - BLOOD HUMAN CHORIONIC GONADOTROPIN DECREASED [None]
  - DRUG EXPOSURE DURING PREGNANCY [None]
